FAERS Safety Report 4398106-9 (Version None)
Quarter: 2004Q3

REPORT INFORMATION
  Report Type: 
  Country: None (occurrence: None)
  Receive Date: 20040713
  Receipt Date: 20040701
  Transmission Date: 20050211
  Serious: No
  Sender: FDA-Public Use
  Company Number: 2004AP02046

PATIENT
  Age: 43 Year
  Sex: Female
  Weight: 51 kg

DRUGS (9)
  1. NOLVADEX [Suspect]
     Indication: BREAST CANCER
     Dosage: 20 MG DAILY PO
     Route: 048
     Dates: start: 20030714, end: 20031001
  2. NOLVADEX [Suspect]
     Indication: BREAST CANCER
     Dosage: 20 MG DAILY PO
     Route: 048
     Dates: start: 20040223
  3. ZOLADEX [Suspect]
     Indication: BREAST CANCER
     Dosage: 3.6 MG SQ
     Route: 058
     Dates: start: 20040223
  4. ENDOXAN [Concomitant]
  5. FARMORUBICIN [Concomitant]
  6. FLUOROURACIL [Concomitant]
  7. DECADRON [Concomitant]
  8. ZANTAC [Concomitant]
  9. KYTRIL [Concomitant]

REACTIONS (3)
  - BLINDNESS TRANSIENT [None]
  - CORNEAL OEDEMA [None]
  - VISUAL ACUITY REDUCED [None]
